FAERS Safety Report 7071843-3 (Version None)
Quarter: 2010Q4

REPORT INFORMATION
  Report Type: 
  Country: None (occurrence: None)
  Receive Date: 20101029
  Receipt Date: 20101020
  Transmission Date: 20110411
  Serious: Yes (Other)
  Sender: FDA-Public Use
  Company Number: PHHY2010ES72401

PATIENT

DRUGS (1)
  1. STALEVO 100 [Suspect]
     Indication: PARKINSON'S DISEASE

REACTIONS (3)
  - FRONTOTEMPORAL DEMENTIA [None]
  - MENTAL IMPAIRMENT [None]
  - PATHOLOGICAL GAMBLING [None]
